FAERS Safety Report 16808685 (Version 1)
Quarter: 2019Q3

REPORT INFORMATION
  Report Type: Spontaneous
  Country: IL (occurrence: IL)
  Receive Date: 20190916
  Receipt Date: 20190916
  Transmission Date: 20191005
  Serious: Yes (Other)
  Sender: FDA-Public Use
  Company Number: IL-SA-2019SA247805

PATIENT
  Age: 46 Year
  Sex: Female

DRUGS (5)
  1. XOLAIR [Concomitant]
     Active Substance: OMALIZUMAB
  2. FEXOFENADINE [Concomitant]
     Active Substance: FEXOFENADINE HYDROCHLORIDE
     Dosage: UNK UNK, QD
  3. DUPIXENT [Suspect]
     Active Substance: DUPILUMAB
     Dosage: 300 MG
     Route: 065
     Dates: start: 2019
  4. DUPIXENT [Suspect]
     Active Substance: DUPILUMAB
     Indication: ASTHMA
     Dosage: 600 MG, 1X
     Route: 065
     Dates: start: 2019, end: 2019
  5. NUCALA [Concomitant]
     Active Substance: MEPOLIZUMAB
     Indication: HYPERSENSITIVITY
     Dosage: UNK
     Dates: start: 2017

REACTIONS (8)
  - Asthma [Unknown]
  - Skin ulcer [Unknown]
  - Arthralgia [Unknown]
  - Pulmonary oedema [Unknown]
  - Skin exfoliation [Unknown]
  - Cough [Unknown]
  - Erythema [Unknown]
  - Off label use [Unknown]

NARRATIVE: CASE EVENT DATE: 201907
